FAERS Safety Report 6570322-7 (Version None)
Quarter: 2010Q1

REPORT INFORMATION
  Report Type: 
  Country: None (occurrence: None)
  Receive Date: 20100204
  Receipt Date: 20100121
  Transmission Date: 20100710
  Serious: Yes (Other)
  Sender: FDA-Public Use
  Company Number: CN-BRISTOL-MYERS SQUIBB COMPANY-14946065

PATIENT
  Age: 62 Year
  Sex: Female

DRUGS (2)
  1. PACLITAXEL [Suspect]
     Indication: GASTRIC CANCER
     Dosage: 1DF=113 UNITS NOT SPECIFIED.
     Dates: start: 20091221, end: 20100104
  2. LAPATINIB [Suspect]
     Indication: GASTRIC CANCER
     Dates: start: 20090714, end: 20100118

REACTIONS (1)
  - BREAST CANCER [None]
